FAERS Safety Report 17775295 (Version 1)
Quarter: 2020Q2

REPORT INFORMATION
  Report Type: Report from Study
  Country: EC (occurrence: EC)
  Receive Date: 20200513
  Receipt Date: 20200513
  Transmission Date: 20200714
  Serious: Yes (Other)
  Sender: FDA-Public Use
  Company Number: EC-CHEPLA-2392343

PATIENT
  Sex: Female

DRUGS (3)
  1. SIBUTRAMINE [Concomitant]
     Active Substance: SIBUTRAMINE
  2. XENICAL [Suspect]
     Active Substance: ORLISTAT
     Indication: PRODUCT USED FOR UNKNOWN INDICATION
     Route: 065
  3. INSULIN [Concomitant]
     Active Substance: INSULIN NOS
     Route: 065

REACTIONS (10)
  - Obesity [Unknown]
  - Irritable bowel syndrome [Unknown]
  - Fatigue [Unknown]
  - Lung disorder [Unknown]
  - Weight increased [Unknown]
  - Gastrointestinal disorder [Unknown]
  - Blood glucose increased [Unknown]
  - Constipation [Unknown]
  - Diabetes mellitus [Unknown]
  - Limb discomfort [Unknown]
